FAERS Safety Report 8559228 (Version 3)
Quarter: 2013Q1

REPORT INFORMATION
  Report Type: Report from Study
  Country: US (occurrence: US)
  Receive Date: 20120511
  Receipt Date: 20130301
  Transmission Date: 20140127
  Serious: Yes (Death, Other)
  Sender: FDA-Public Use
  Company Number: US-ACTELION-A-NJ2012-65210

PATIENT
  Age: 59 Year
  Sex: Female

DRUGS (2)
  1. TRACLEER [Suspect]
     Indication: PULMONARY ARTERIAL HYPERTENSION
     Dosage: UNK
     Route: 048
     Dates: start: 200801, end: 20121225
  2. REVATIO [Concomitant]

REACTIONS (5)
  - Death [Fatal]
  - Liver disorder [Unknown]
  - Oesophageal carcinoma [Unknown]
  - Throat cancer [Not Recovered/Not Resolved]
  - Laceration [Unknown]
